FAERS Safety Report 7178516-7 (Version None)
Quarter: 2010Q4

REPORT INFORMATION
  Report Type: 
  Country: None (occurrence: None)
  Receive Date: 20101220
  Receipt Date: 20101209
  Transmission Date: 20110411
  Serious: Yes (Other)
  Sender: FDA-Public Use
  Company Number: NL-AMGEN-NLDSP2010003764

PATIENT

DRUGS (2)
  1. ENBREL [Suspect]
     Indication: RHEUMATOID ARTHRITIS
     Dosage: 50 MG, WEEKLY
     Dates: start: 20100813
  2. ENBREL [Suspect]
     Dosage: 50 MG, WEEKLY
     Dates: start: 20100813, end: 20101029

REACTIONS (5)
  - EAR INFECTION [None]
  - EAR PAIN [None]
  - MIDDLE EAR EFFUSION [None]
  - OROPHARYNGEAL PAIN [None]
  - RHINITIS [None]
